FAERS Safety Report 11242862 (Version 1)
Quarter: 2015Q3

REPORT INFORMATION
  Report Type: Spontaneous
  Country: US (occurrence: None)
  Receive Date: 20150701
  Receipt Date: 20150701
  Transmission Date: 20151125
  Serious: No
  Sender: FDA-Public Use
  Company Number: None

PATIENT
  Sex: Male

DRUGS (1)
  1. LUMIZYME [Suspect]
     Active Substance: ALGLUCOSIDASE ALFA
     Indication: GLYCOGEN STORAGE DISORDER
     Dosage: 240 MG  EVERY 2 WEEKS  IV
     Route: 042
     Dates: start: 20141212

REACTIONS (2)
  - Patella fracture [None]
  - Fall [None]

NARRATIVE: CASE EVENT DATE: 20150615
